FAERS Safety Report 5741309-9 (Version None)
Quarter: 2008Q2

REPORT INFORMATION
  Report Type: 
  Country: None (occurrence: None)
  Receive Date: 20080515
  Receipt Date: 20080430
  Transmission Date: 20081010
  Serious: Yes (Disabling)
  Sender: FDA-Public Use
  Company Number: APP200800118

PATIENT
  Age: 16 Year
  Sex: Female

DRUGS (3)
  1. SENSORCAINE [Suspect]
     Indication: MUSCULOSKELETAL PAIN
     Dosage: CONTINUOUS VIA PAIN PUMP, INJECTION
     Dates: start: 20060201
  2. POLOCAINE [Suspect]
     Indication: MUSCULOSKELETAL PAIN
     Dates: start: 20060201
  3. ON-Q PAIN PUMP [Suspect]
     Indication: MUSCULOSKELETAL PAIN
     Dates: start: 20060220

REACTIONS (3)
  - CHONDROLYSIS [None]
  - MOVEMENT DISORDER [None]
  - MUSCULOSKELETAL PAIN [None]
